FAERS Safety Report 5821661-6 (Version None)
Quarter: 2008Q3

REPORT INFORMATION
  Report Type: 
  Country: None (occurrence: None)
  Receive Date: 20080724
  Receipt Date: 20080715
  Transmission Date: 20090109
  Serious: Yes (Hospitalization)
  Sender: FDA-Public Use
  Company Number: PHBS2006IT04902

PATIENT
  Age: 38 Year
  Sex: Female

DRUGS (2)
  1. VOLTAREN [Suspect]
     Indication: PAIN
     Dosage: 75 MG/DAY
     Route: 030
     Dates: start: 20060225
  2. LIOMETACEN [Concomitant]
     Indication: PAIN
     Dosage: 25 MG/DAY
     Route: 030
     Dates: start: 20050319

REACTIONS (5)
  - ARTHRALGIA [None]
  - CHILLS [None]
  - PYREXIA [None]
  - RASH [None]
  - THROMBOCYTOPENIA [None]
